FAERS Safety Report 5278487-4 (Version None)
Quarter: 2007Q1

REPORT INFORMATION
  Report Type: 
  Country: None (occurrence: None)
  Receive Date: 20061208
  Receipt Date: 20060525
  Transmission Date: 20070707
  Serious: Yes (Death)
  Sender: FDA-Public Use
  Company Number: USA-2004-0015811

PATIENT
  Age: 60 Year
  Sex: Female

DRUGS (9)
  1. OXYCONTIN [Suspect]
     Indication: PAIN
  2. LIBRIUM [Suspect]
     Indication: DRUG USE FOR UNKNOWN INDICATION
  3. OXYMORPHONE (OXYMORPHONE) [Suspect]
     Indication: DRUG USE FOR UNKNOWN INDICATION
  4. RESTORIL [Suspect]
     Indication: DRUG USE FOR UNKNOWN INDICATION
  5. CITALOPRAM HYDROBROMIDE [Suspect]
     Indication: DRUG USE FOR UNKNOWN INDICATION
  6. CELEXA [Concomitant]
  7. NEURONTIN [Concomitant]
  8. CELEBREX [Concomitant]
  9. PROTONIX [Concomitant]

REACTIONS (2)
  - ARRHYTHMIA [None]
  - MULTIPLE DRUG OVERDOSE ACCIDENTAL [None]
